FAERS Safety Report 25745885 (Version 1)
Quarter: 2025Q3

REPORT INFORMATION
  Report Type: Other
  Country: GB (occurrence: GB)
  Receive Date: 20250901
  Receipt Date: 20250901
  Transmission Date: 20251020
  Serious: Yes (Other)
  Sender: MACLEODS
  Company Number: None

PATIENT

DRUGS (9)
  1. TOLTERODINE [Suspect]
     Active Substance: TOLTERODINE
     Indication: Urge incontinence
     Dosage: 1MG TWICE A DAY
     Route: 065
     Dates: start: 20250814, end: 20250816
  2. DULOXETINE [Concomitant]
     Active Substance: DULOXETINE
     Indication: Urge incontinence
  3. CODEINE [Concomitant]
     Active Substance: CODEINE
     Indication: Pain
  4. EZETIMIBE [Concomitant]
     Active Substance: EZETIMIBE
     Indication: Blood cholesterol increased
  5. PROGESTERONE [Concomitant]
     Active Substance: PROGESTERONE
     Indication: Menopause
  6. ESTROGENS [Concomitant]
     Active Substance: ESTROGENS
     Indication: Menopause
  7. ZOPICLONE [Concomitant]
     Active Substance: ZOPICLONE
     Indication: Insomnia
  8. BUPRENORPHINE [Concomitant]
     Active Substance: BUPRENORPHINE
     Indication: Arthritis
  9. ETORICOXIB [Concomitant]
     Active Substance: ETORICOXIB
     Indication: Pain

REACTIONS (5)
  - Arthralgia [Recovering/Resolving]
  - Pain of skin [Recovering/Resolving]
  - Pain [Recovering/Resolving]
  - Hypersensitivity [Unknown]
  - Headache [Recovering/Resolving]

NARRATIVE: CASE EVENT DATE: 20250815
